FAERS Safety Report 5675078-8 (Version None)
Quarter: 2008Q1

REPORT INFORMATION
  Report Type: 
  Country: None (occurrence: None)
  Receive Date: 20080320
  Receipt Date: 20080312
  Transmission Date: 20080703
  Serious: Yes (Other)
  Sender: FDA-Public Use
  Company Number: US-AVENTIS-200718652US

PATIENT
  Age: 54 Year
  Sex: Female

DRUGS (5)
  1. LANTUS [Suspect]
     Route: 051
     Dates: start: 20070101
  2. OPTICLIK GREY [Suspect]
     Dates: start: 20070101
  3. GLIPIZIDE [Concomitant]
     Dosage: DOSE: UNK
  4. GABAPENTIN [Concomitant]
     Dosage: DOSE: UNK
  5. LIPITOR [Concomitant]
     Dosage: DOSE: UNK

REACTIONS (4)
  - ASTHENIA [None]
  - FATIGUE [None]
  - HYPERGLYCAEMIA [None]
  - RENAL FAILURE [None]
